FAERS Safety Report 9332705 (Version 1)
Quarter: 2013Q2

REPORT INFORMATION
  Report Type: Spontaneous
  Country: US (occurrence: US)
  Receive Date: 20130606
  Receipt Date: 20130606
  Transmission Date: 20140414
  Serious: No
  Sender: FDA-Public Use
  Company Number: US-PFIZER INC-2013171685

PATIENT
  Age: 56 Year
  Sex: Female
  Weight: 72.11 kg

DRUGS (1)
  1. CHANTIX [Suspect]
     Indication: SMOKING CESSATION THERAPY
     Dosage: UNK
     Dates: start: 201305, end: 201305

REACTIONS (3)
  - Anxiety [Unknown]
  - Dyspnoea [Unknown]
  - Nervousness [Unknown]
